FAERS Safety Report 15179036 (Version 1)
Quarter: 2018Q3

REPORT INFORMATION
  Report Type: Spontaneous
  Country: DE (occurrence: DE)
  Receive Date: 20180723
  Receipt Date: 20180723
  Transmission Date: 20181010
  Serious: Yes (Hospitalization)
  Sender: FDA-Public Use
  Company Number: DE-DEXPHARM-20180070

PATIENT
  Age: 82 Year
  Sex: Female
  Weight: 65 kg

DRUGS (8)
  1. SOLVEX (REBOXETINE MESILATE) [Suspect]
     Active Substance: REBOXETINE MESYLATE
     Indication: INTENTIONAL OVERDOSE
     Route: 048
     Dates: start: 20090713, end: 20090713
  2. CORVO HCT [Suspect]
     Active Substance: ENALAPRIL MALEATE\HYDROCHLOROTHIAZIDE
     Indication: INTENTIONAL OVERDOSE
     Route: 048
     Dates: start: 20090713, end: 20090713
  3. TEBONIN FORTE [Suspect]
     Active Substance: GINKGO
     Indication: INTENTIONAL OVERDOSE
     Route: 048
     Dates: start: 20090713, end: 20090713
  4. VASERETIC [Suspect]
     Active Substance: ENALAPRIL MALEATE\HYDROCHLOROTHIAZIDE
     Route: 048
     Dates: start: 20090713, end: 20090713
  5. OLMETEC [Suspect]
     Active Substance: OLMESARTAN MEDOXOMIL
     Indication: INTENTIONAL OVERDOSE
     Route: 048
     Dates: start: 20090713, end: 20090713
  6. METOPROLOL. [Suspect]
     Active Substance: METOPROLOL
     Indication: INTENTIONAL OVERDOSE
     Route: 048
     Dates: start: 20090713, end: 20090713
  7. ISOSORBIDE MONONITRATE. [Suspect]
     Active Substance: ISOSORBIDE MONONITRATE
     Indication: INTENTIONAL OVERDOSE
     Route: 048
     Dates: start: 20090713, end: 20090713
  8. MOLSIDOMIN [Suspect]
     Active Substance: MOLSIDOMINE
     Indication: INTENTIONAL OVERDOSE
     Route: 048
     Dates: start: 20090713, end: 20090713

REACTIONS (4)
  - Atrioventricular block first degree [None]
  - Intentional overdose [None]
  - Bradycardia [None]
  - Suicide attempt [Recovered/Resolved]

NARRATIVE: CASE EVENT DATE: 20090713
